FAERS Safety Report 10386455 (Version 1)
Quarter: 2014Q3

REPORT INFORMATION
  Report Type: Spontaneous
  Country: BR (occurrence: BR)
  Receive Date: 20140815
  Receipt Date: 20140815
  Transmission Date: 20150326
  Serious: Yes (Hospitalization)
  Sender: FDA-Public Use
  Company Number: BR-PFIZER INC-2014222832

PATIENT
  Age: 80 Year
  Sex: Male
  Weight: 70 kg

DRUGS (3)
  1. XALATAN [Suspect]
     Active Substance: LATANOPROST
     Indication: INTRAOCULAR PRESSURE INCREASED
     Dosage: UNK
     Route: 047
     Dates: start: 2011
  2. METFORMIN [Concomitant]
     Active Substance: METFORMIN HYDROCHLORIDE
     Indication: DIABETES MELLITUS
     Dosage: 1 TABLET OF STRENGTH 850 MG, DAILY
     Dates: start: 2009
  3. RIVOTRIL [Concomitant]
     Active Substance: CLONAZEPAM
     Indication: PALPITATIONS
     Dosage: 3 TO 5 DROPS DAILY
     Dates: start: 2011

REACTIONS (3)
  - Cough [Unknown]
  - Influenza [Unknown]
  - Cataract [Unknown]

NARRATIVE: CASE EVENT DATE: 2012
